FAERS Safety Report 15695854 (Version 1)
Quarter: 2018Q4

REPORT INFORMATION
  Report Type: Spontaneous
  Country: US (occurrence: US)
  Receive Date: 20181206
  Receipt Date: 20181206
  Transmission Date: 20190205
  Serious: No
  Sender: FDA-Public Use
  Company Number: US-B.I. PHARMACEUTICALS,INC./RIDGEFIELD-2018-BI-058081

PATIENT
  Age: 50 Year
  Sex: Male

DRUGS (1)
  1. JARDIANCE [Suspect]
     Active Substance: EMPAGLIFLOZIN
     Indication: DIABETES MELLITUS
     Dosage: ONCE DAILY;  FORM STRENGTH: 10 MG; FORMULATION: TABLET?ACTION(S) TAKEN : DOSE NOT CHANGED
     Route: 048
     Dates: start: 201608

REACTIONS (2)
  - Pollakiuria [Not Recovered/Not Resolved]
  - Fungal infection [Not Recovered/Not Resolved]

NARRATIVE: CASE EVENT DATE: 201711
